FAERS Safety Report 6730761-8 (Version None)
Quarter: 2010Q2

REPORT INFORMATION
  Report Type: 
  Country: None (occurrence: None)
  Receive Date: 20100518
  Receipt Date: 20100511
  Transmission Date: 20101027
  Serious: Yes (Hospitalization)
  Sender: FDA-Public Use
  Company Number: ES-BAYER-201024221GPV

PATIENT
  Age: 79 Year
  Sex: Male

DRUGS (9)
  1. REGORAFENIB (STUDY MEDICATION NOT YET GIVEN) [Suspect]
     Indication: HEPATIC NEOPLASM MALIGNANT
  2. NEXAVAR [Suspect]
     Indication: HEPATIC NEOPLASM MALIGNANT
     Route: 048
     Dates: start: 20090115
  3. AMLODIPINE [Concomitant]
     Indication: HYPERTENSION
     Route: 048
  4. DURAGESIC-100 [Concomitant]
     Indication: BONE PAIN
     Route: 062
     Dates: start: 20100211
  5. FORTECORTIN [Concomitant]
     Indication: BONE PAIN
     Route: 048
  6. OMEPRAZOLE [Concomitant]
     Indication: PROPHYLAXIS
     Route: 048
  7. OMNIC [Concomitant]
     Indication: BENIGN PROSTATIC HYPERPLASIA
     Route: 048
     Dates: start: 20100201
  8. SERREDOL [Concomitant]
     Indication: BONE PAIN
     Route: 048
  9. LORAZEPAM [Concomitant]
     Indication: ANXIETY
     Route: 048

REACTIONS (2)
  - PNEUMONIA [None]
  - TRANSIENT ISCHAEMIC ATTACK [None]
